APPROVED DRUG PRODUCT: CORTRIL
Active Ingredient: HYDROCORTISONE ACETATE
Strength: 25MG/ML
Dosage Form/Route: INJECTABLE;INJECTION
Application: N009164 | Product #001
Applicant: PFIZER LABORATORIES DIV PFIZER INC
Approved: Approved Prior to Jan 1, 1982 | RLD: No | RS: No | Type: DISCN